FAERS Safety Report 8029839-0 (Version None)
Quarter: 2012Q1

REPORT INFORMATION
  Report Type: 
  Country: None (occurrence: None)
  Receive Date: 20120109
  Receipt Date: 20120105
  Transmission Date: 20120608
  Serious: Yes (Hospitalization)
  Sender: FDA-Public Use
  Company Number: US-BAYER-2012-001671

PATIENT
  Age: 58 Year
  Sex: Male

DRUGS (3)
  1. GLIPIZIDE [Concomitant]
     Dosage: 5 MG
  2. ATENOLOL [Concomitant]
     Dosage: 25 MG
  3. NEXAVAR [Suspect]
     Indication: HEPATIC NEOPLASM MALIGNANT
     Dosage: 200 MG, QD
     Route: 048
     Dates: start: 20110921

REACTIONS (1)
  - HEPATIC ENCEPHALOPATHY [None]
